FAERS Safety Report 6004332-5 (Version None)
Quarter: 2008Q4

REPORT INFORMATION
  Report Type: 
  Country: None (occurrence: None)
  Receive Date: 20081215
  Receipt Date: 20081215
  Transmission Date: 20090506
  Serious: Yes (Other)
  Sender: FDA-Public Use
  Company Number: None

PATIENT
  Age: 54 Year
  Sex: Female
  Weight: 56.246 kg

DRUGS (2)
  1. CIPROFLOXACIN HYDROCHLORIDE [Suspect]
     Indication: ANIMAL BITE
     Dosage: 1000MG 10 DAYS PO
     Route: 048
     Dates: start: 20080622, end: 20080702
  2. CIPROFLOXACIN HYDROCHLORIDE [Suspect]
     Indication: INFECTED BITES
     Dosage: 1000MG 10 DAYS PO
     Route: 048
     Dates: start: 20080622, end: 20080702

REACTIONS (9)
  - ARTHRALGIA [None]
  - DIARRHOEA [None]
  - DRUG HYPERSENSITIVITY [None]
  - HAEMORRHOIDS [None]
  - MUSCULOSKELETAL STIFFNESS [None]
  - PAIN IN EXTREMITY [None]
  - PHOTOSENSITIVITY REACTION [None]
  - RASH [None]
  - SUPERFICIAL VEIN PROMINENCE [None]
